FAERS Safety Report 9391868 (Version 3)
Quarter: 2013Q4

REPORT INFORMATION
  Report Type: Spontaneous
  Country: US (occurrence: None)
  Receive Date: 20130705
  Receipt Date: 20131002
  Transmission Date: 20140711
  Serious: Yes (Hospitalization, Other)
  Sender: FDA-Public Use
  Company Number: JPI-P-033256

PATIENT
  Age: 36 Year
  Sex: Male
  Weight: 103.2 kg

DRUGS (15)
  1. XYREM (500 MILLIGRAM/MILLILITERS, SOLUTION) (SODIUM OXYBATE) [Suspect]
     Indication: NARCOLEPSY
     Route: 048
     Dates: start: 200703
  2. XYREM (500 MILLIGRAM/MILLILITERS, SOLUTION) (SODIUM OXYBATE) [Suspect]
     Indication: CATAPLEXY
     Route: 048
     Dates: start: 200703
  3. MIRTAZAPINE (MIRTAZAPINE) [Concomitant]
  4. DESVENLAFAXINE (DESVENLAFAXINE) [Concomitant]
  5. AMPHETAMINE, DEXTROAMPHETAMINE MIXED SALTS (PSYCHOSTIMULANTS AND NOOTROPICS) [Concomitant]
  6. ARMODAFINIL (ARMODAFINIL) [Concomitant]
  7. ADDERALL (AMFETAMINE ASPARTATE, AMFETAMINE SULFATE, DEXAMFETAMINE SACCHARATE, DEXAMFETAMINE SULFATE) [Concomitant]
  8. ASPIRIN (ACETYLSALICYLIC ACID) [Concomitant]
  9. COREG (CARVEDILOL) [Concomitant]
  10. LORTAB (HYDROCODONE BITARTRATE, PARACETAMOL) [Concomitant]
  11. NEXIUM (ESOMEPRAZOLE MAGNESIUM) [Concomitant]
  12. NUVIGIL (ARMOFAFINIL) [Concomitant]
  13. PRISTIQ (DESVENLAFAXINE SUCCINATE) [Concomitant]
  14. VITAMIN D3 (COLECALCIFEROL) [Concomitant]
  15. XANAX (ALPRAZOLAM) [Concomitant]

REACTIONS (12)
  - Pain in extremity [None]
  - Surgery [None]
  - Neck surgery [None]
  - Spinal column stenosis [None]
  - Spinal fusion surgery [None]
  - Sinus headache [None]
  - Nasal congestion [None]
  - Dyspepsia [None]
  - Affect lability [None]
  - Mood swings [None]
  - Headache [None]
  - Amnesia [None]
